FAERS Safety Report 23600923 (Version 1)
Quarter: 2024Q1

REPORT INFORMATION
  Report Type: Spontaneous
  Country: US (occurrence: None)
  Receive Date: 20240305
  Receipt Date: 20240305
  Transmission Date: 20240410
  Serious: Yes (Hospitalization)
  Sender: FDA-Public Use
  Company Number: None

PATIENT
  Age: 45 Year
  Sex: Female

DRUGS (13)
  1. TACROLIMUS [Suspect]
     Active Substance: TACROLIMUS
  2. Atovaquone 750mg/50ml oral suspension [Concomitant]
  3. AZITHROMYCIN ANHYDROUS [Concomitant]
     Active Substance: AZITHROMYCIN ANHYDROUS
  4. Calcium citrate + Vitamin D3 [Concomitant]
  5. CRESEMBA [Concomitant]
     Active Substance: ISAVUCONAZONIUM SULFATE
  6. FAMCICLOVIR [Concomitant]
     Active Substance: FAMCICLOVIR
  7. LEVETIRACETAM [Concomitant]
     Active Substance: LEVETIRACETAM
  8. MAGNESIUM OXIDE 400MG [Concomitant]
     Active Substance: MAGNESIUM OXIDE
  9. MYCOPHENOLIC ACID [Concomitant]
     Active Substance: MYCOPHENOLIC ACID
  10. OMEPRAZOLE [Concomitant]
     Active Substance: OMEPRAZOLE
  11. PAROXETINE [Concomitant]
     Active Substance: PAROXETINE
  12. PREDNISONE [Concomitant]
     Active Substance: PREDNISONE
  13. VALGANCICLOVIR HYDROCHLORIDE [Concomitant]
     Active Substance: VALGANCICLOVIR HYDROCHLORIDE

REACTIONS (2)
  - Pneumonia [None]
  - Transplant rejection [None]

NARRATIVE: CASE EVENT DATE: 20240221
